FAERS Safety Report 6838048-X (Version None)
Quarter: 2010Q3

REPORT INFORMATION
  Report Type: 
  Country: None (occurrence: None)
  Receive Date: 20100713
  Receipt Date: 20070529
  Transmission Date: 20110219
  Serious: No
  Sender: FDA-Public Use
  Company Number: US-PFIZER INC-2007045299

PATIENT
  Sex: Female
  Weight: 74.4 kg

DRUGS (5)
  1. CHANTIX [Suspect]
     Indication: SMOKING CESSATION THERAPY
     Dates: start: 20070504, end: 20070508
  2. SEROQUEL [Concomitant]
     Indication: MENTAL DISORDER
  3. LITHIUM [Concomitant]
     Indication: MENTAL DISORDER
  4. CLONAZEPAM [Concomitant]
     Indication: MENTAL DISORDER
  5. ALL OTHER THERAPEUTIC PRODUCTS [Concomitant]
     Indication: ASTHMA

REACTIONS (2)
  - FATIGUE [None]
  - SOMNOLENCE [None]
